FAERS Safety Report 23564199 (Version 1)
Quarter: 2024Q1

REPORT INFORMATION
  Report Type: Spontaneous
  Country: US (occurrence: US)
  Receive Date: 20240226
  Receipt Date: 20240226
  Transmission Date: 20240409
  Serious: Yes (Other)
  Sender: FDA-Public Use
  Company Number: US-RECKITT BENCKISER HEALTHCARE INT LIMITED-RB-083979-2024

PATIENT

DRUGS (2)
  1. MUCINEX SINUS-MAX SEVERE NASAL CONGESTION RELIEF CLEAR AND COOL NASAL [Suspect]
     Active Substance: OXYMETAZOLINE HYDROCHLORIDE
     Indication: Nasal congestion
     Dosage: UNK
     Route: 065
  2. MUCINEX SINUS-MAX SEVERE NASAL CONGESTION RELIEF CLEAR AND COOL NASAL [Suspect]
     Active Substance: OXYMETAZOLINE HYDROCHLORIDE
     Indication: Drug dependence

REACTIONS (2)
  - Drug dependence [Unknown]
  - Therapeutic product effect incomplete [Not Recovered/Not Resolved]
